FAERS Safety Report 22366572 (Version 1)
Quarter: 2023Q2

REPORT INFORMATION
  Report Type: Spontaneous
  Country: US (occurrence: None)
  Receive Date: 20230524
  Receipt Date: 20230524
  Transmission Date: 20230721
  Serious: Yes (Other)
  Sender: FDA-Public Use
  Company Number: None

PATIENT
  Age: 80 Year
  Sex: Female

DRUGS (1)
  1. FORTEO [Suspect]
     Active Substance: TERIPARATIDE
     Indication: Senile osteoporosis
     Dosage: 20MCG QC INJ SC
     Route: 058
     Dates: start: 20230502

REACTIONS (5)
  - Dizziness [None]
  - Fall [None]
  - Neck injury [None]
  - Skeletal injury [None]
  - Pain [None]

NARRATIVE: CASE EVENT DATE: 20230524
